FAERS Safety Report 6050203-8 (Version None)
Quarter: 2009Q1

REPORT INFORMATION
  Report Type: 
  Country: None (occurrence: None)
  Receive Date: 20090121
  Receipt Date: 20090105
  Transmission Date: 20090719
  Serious: Yes (Hospitalization)
  Sender: FDA-Public Use
  Company Number: 2009000034

PATIENT
  Age: 78 Year
  Sex: Male

DRUGS (1)
  1. ERLOTINIB /PLACEBO (ERLOTINIB HC1) (TABLET) (ERLOTINIB HC1) [Suspect]
     Indication: NON-SMALL CELL LUNG CANCER
     Dosage: ORAL
     Route: 048

REACTIONS (5)
  - ATRIAL FIBRILLATION [None]
  - BLOOD MAGNESIUM DECREASED [None]
  - BLOOD POTASSIUM DECREASED [None]
  - CONSTIPATION [None]
  - DIARRHOEA [None]
